FAERS Safety Report 11046125 (Version 2)
Quarter: 2015Q2

REPORT INFORMATION
  Report Type: Spontaneous
  Country: US (occurrence: US)
  Receive Date: 20150418
  Receipt Date: 20150524
  Transmission Date: 20150821
  Serious: No
  Sender: FDA-Public Use
  Company Number: US-JNJFOC-20140103062

PATIENT
  Sex: Female

DRUGS (2)
  1. KETOCONAZOLE. [Suspect]
     Active Substance: KETOCONAZOLE
     Indication: PRODUCT USED FOR UNKNOWN INDICATION
     Route: 061
  2. KETOCONAZOLE. [Suspect]
     Active Substance: KETOCONAZOLE
     Route: 061

REACTIONS (1)
  - Drug ineffective [Not Recovered/Not Resolved]
